FAERS Safety Report 4447231-2 (Version None)
Quarter: 2004Q3

REPORT INFORMATION
  Report Type: 
  Country: None (occurrence: None)
  Receive Date: 20040813
  Receipt Date: 20040625
  Transmission Date: 20050211
  Serious: No
  Sender: FDA-Public Use
  Company Number: S04-USA-04009-01

PATIENT
  Age: 82 Year
  Sex: Female

DRUGS (11)
  1. NAMENDA [Suspect]
     Indication: DEMENTIA ALZHEIMER'S TYPE
     Dosage: 5 MG QD PO
     Route: 048
     Dates: start: 20040605, end: 20040611
  2. NAMENDA [Suspect]
     Indication: DEMENTIA ALZHEIMER'S TYPE
     Dosage: 10 MG QD PO
     Route: 048
     Dates: start: 20040612, end: 20040618
  3. NAMENDA [Suspect]
     Indication: DEMENTIA ALZHEIMER'S TYPE
     Dosage: 15 MG QD PO
     Route: 048
     Dates: start: 20040619, end: 20040701
  4. DOCUSATE [Concomitant]
  5. ASPIRIN [Concomitant]
  6. QUININE [Concomitant]
  7. COZAAR [Concomitant]
  8. EXELON [Concomitant]
  9. RISPERDAL [Concomitant]
  10. EVISTA [Concomitant]
  11. AMBIEN [Concomitant]

REACTIONS (4)
  - AGITATION [None]
  - EAR INFECTION [None]
  - SPEECH DISORDER [None]
  - UPPER RESPIRATORY TRACT INFECTION [None]
